FAERS Safety Report 8924332 (Version 4)
Quarter: 2013Q4

REPORT INFORMATION
  Report Type: Report from Study
  Country: JP (occurrence: JP)
  Receive Date: 20121126
  Receipt Date: 20131024
  Transmission Date: 20140711
  Serious: Yes (Other)
  Sender: FDA-Public Use
  Company Number: JP-VERTEX PHARMACEUTICAL INC.-AE-2012-007026

PATIENT
  Age: 61 Year
  Sex: Female

DRUGS (21)
  1. VX-950 (TELAPREVIR) [Suspect]
     Indication: CHRONIC HEPATITIS C
     Dosage: 2250 MG, QD
     Route: 048
     Dates: start: 20120313, end: 20120410
  2. VX-950 (TELAPREVIR) [Suspect]
     Dosage: 1500 MG, QD
     Route: 048
     Dates: start: 20120411, end: 20120418
  3. REBETOL [Suspect]
     Indication: CHRONIC HEPATITIS C
     Dosage: 600 MG, QD
     Route: 048
     Dates: start: 20120313, end: 20120327
  4. REBETOL [Suspect]
     Dosage: 400 MG, QD
     Route: 048
     Dates: start: 20120328, end: 20120411
  5. REBETOL [Suspect]
     Dosage: 400 MG, QD
     Route: 048
     Dates: start: 20120704, end: 20120828
  6. PEGINTERFERON ALFA-2B [Suspect]
     Indication: CHRONIC HEPATITIS C
     Dosage: 1.5 ?G/KG, QW
     Route: 058
     Dates: start: 20120313, end: 20120822
  7. URSO [Concomitant]
     Dosage: 600 MG, QD
     Route: 048
     Dates: start: 20120326
  8. URSO [Concomitant]
     Dosage: 600 MG, QD
     Route: 048
     Dates: start: 20120328, end: 20120606
  9. SOSEGON [Concomitant]
     Dosage: 15 MG, QD
     Route: 042
     Dates: start: 20120312, end: 20120312
  10. ATARAX -P [Concomitant]
     Dosage: 25 MG, QD
     Route: 042
     Dates: start: 20120312, end: 20120312
  11. ISOTONIC SODIUM CHLORIDE SOLUTION [Concomitant]
     Dosage: 20 ML, QD
     Route: 042
     Dates: start: 20120312, end: 20120312
  12. ISOTONIC SODIUM CHLORIDE SOLUTION [Concomitant]
     Dosage: 200 ML, QD
     Route: 042
     Dates: start: 20120312, end: 20120312
  13. YUEKIN KEEP [Concomitant]
     Dosage: 1000 ML, QD
     Route: 041
     Dates: start: 20120312, end: 20120312
  14. YUEKIN KEEP [Concomitant]
     Dosage: 500 ML, QD
     Route: 041
     Dates: start: 20120313, end: 20120313
  15. ADONA [Concomitant]
     Dosage: 50 MG, QD
     Route: 042
     Dates: start: 20120312, end: 20120312
  16. TRANSAMIN [Concomitant]
     Dosage: 1 DF, QD
     Route: 042
     Dates: start: 20120312, end: 20120312
  17. PIRETAZOL [Concomitant]
     Dosage: 2 DF, QD
     Route: 042
     Dates: start: 20120312, end: 20120312
  18. XYLOCAINE POLYAMP [Concomitant]
     Dosage: 1 DF, QD
     Route: 042
     Dates: start: 20120312, end: 20120312
  19. ANTEBATE [Concomitant]
     Dosage: 5 G, QD
     Route: 061
     Dates: start: 20120323, end: 20120323
  20. TAKEPRON [Concomitant]
     Dosage: 1 DF, QD
     Route: 048
     Dates: start: 20120404, end: 20120828
  21. RIZE [Concomitant]
     Dosage: 15 MG, QD
     Route: 048
     Dates: start: 20120404, end: 20120828

REACTIONS (2)
  - White blood cell count decreased [Not Recovered/Not Resolved]
  - Haemoglobin decreased [Recovered/Resolved]
